FAERS Safety Report 6880616-3 (Version None)
Quarter: 2010Q3

REPORT INFORMATION
  Report Type: 
  Country: None (occurrence: None)
  Receive Date: 20100727
  Receipt Date: 20100122
  Transmission Date: 20110219
  Serious: No
  Sender: FDA-Public Use
  Company Number: A0839793A

PATIENT
  Age: 80 Year
  Sex: Female

DRUGS (4)
  1. RANITIDINE [Suspect]
     Dosage: 300MG TWICE PER DAY
     Route: 048
     Dates: start: 20091221
  2. ZANTAC [Suspect]
     Indication: PRODUCT USED FOR UNKNOWN INDICATION
     Route: 065
  3. PRILOSEC [Suspect]
     Indication: PRODUCT USED FOR UNKNOWN INDICATION
     Route: 065
  4. PLAVIX [Concomitant]

REACTIONS (3)
  - DRUG INEFFECTIVE [None]
  - DYSPEPSIA [None]
  - NAUSEA [None]
